FAERS Safety Report 11756543 (Version 3)
Quarter: 2016Q1

REPORT INFORMATION
  Report Type: Report from Study
  Country: US (occurrence: US)
  Receive Date: 20151119
  Receipt Date: 20160205
  Transmission Date: 20160525
  Serious: Yes (Other)
  Sender: FDA-Public Use
  Company Number: PHEH2015US010771

PATIENT
  Age: 46 Year
  Sex: Male
  Weight: 79.38 kg

DRUGS (1)
  1. GILENYA [Suspect]
     Active Substance: FINGOLIMOD HYDROCHLORIDE
     Indication: MULTIPLE SCLEROSIS
     Dosage: 0.5 MG, QD
     Route: 048
     Dates: start: 20150603, end: 20160121

REACTIONS (10)
  - Demyelination [Unknown]
  - Hepatic enzyme increased [Unknown]
  - Leukopenia [Recovering/Resolving]
  - Lymphopenia [Recovering/Resolving]
  - Fatigue [Unknown]
  - Paraesthesia [Unknown]
  - Heart rate decreased [Unknown]
  - Blood pressure decreased [Unknown]
  - Transaminases increased [Unknown]
  - Headache [Unknown]

NARRATIVE: CASE EVENT DATE: 20150603
